FAERS Safety Report 24978178 (Version 1)
Quarter: 2025Q1

REPORT INFORMATION
  Report Type: Spontaneous
  Country: SE (occurrence: SE)
  Receive Date: 20250217
  Receipt Date: 20250217
  Transmission Date: 20250408
  Serious: Yes (Other)
  Sender: NOVARTIS
  Company Number: None

PATIENT
  Age: 41 Year
  Sex: Male

DRUGS (1)
  1. TEGRETOL [Suspect]
     Active Substance: CARBAMAZEPINE
     Indication: Facial pain
     Route: 065

REACTIONS (5)
  - Suicidal ideation [Unknown]
  - Headache [Unknown]
  - Bradyphrenia [Unknown]
  - Depressed mood [Unknown]
  - Somnolence [Unknown]
